FAERS Safety Report 4877587-8 (Version None)
Quarter: 2006Q1

REPORT INFORMATION
  Report Type: 
  Country: None (occurrence: None)
  Receive Date: 20060111
  Receipt Date: 20060104
  Transmission Date: 20060701
  Serious: Yes (Other)
  Sender: FDA-Public Use
  Company Number: GB-GLAXOSMITHKLINE-B0406136A

PATIENT
  Sex: Male

DRUGS (6)
  1. SEROXAT [Suspect]
     Dosage: 20MG UNKNOWN
     Route: 065
  2. DIAZEPAM [Concomitant]
     Route: 065
  3. OLANZAPINE [Concomitant]
     Route: 065
  4. PROPRANOLOL [Concomitant]
     Route: 065
  5. RANITIDINE [Concomitant]
     Route: 065
  6. BENDROFLUMETHIAZIDE [Concomitant]
     Route: 065

REACTIONS (3)
  - AGGRESSION [None]
  - COMPLETED SUICIDE [None]
  - ILL-DEFINED DISORDER [None]
